FAERS Safety Report 16151459 (Version 1)
Quarter: 2019Q2

REPORT INFORMATION
  Report Type: Spontaneous
  Country: US (occurrence: US)
  Receive Date: 20190228
  Receipt Date: 20190228
  Transmission Date: 20190711
  Serious: Yes (Disabling, Other)
  Sender: FDA-Public Use
  Company Number: None

PATIENT
  Age: 71 Year
  Sex: Female
  Weight: 95.25 kg

DRUGS (7)
  1. COQ10 [Suspect]
     Active Substance: UBIDECARENONE
  2. FISH OIL [Concomitant]
     Active Substance: FISH OIL
  3. EZETIMIBE. [Suspect]
     Active Substance: EZETIMIBE
     Indication: BLOOD CHOLESTEROL INCREASED
     Route: 048
  4. ALLOPURINOL. [Concomitant]
     Active Substance: ALLOPURINOL
  5. BYSTOLIC [Suspect]
     Active Substance: NEBIVOLOL HYDROCHLORIDE
  6. CALCIUM 1000 [Concomitant]
  7. VITAMIN D3 [Suspect]
     Active Substance: CHOLECALCIFEROL

REACTIONS (4)
  - Tenderness [None]
  - Pain in extremity [None]
  - Sleep disorder [None]
  - Burning sensation [None]
